FAERS Safety Report 6348370-1 (Version None)
Quarter: 2009Q3

REPORT INFORMATION
  Report Type: 
  Country: None (occurrence: None)
  Receive Date: 20090908
  Receipt Date: 20090820
  Transmission Date: 20100115
  Serious: Yes (Hospitalization)
  Sender: FDA-Public Use
  Company Number: 2009AL002409

PATIENT
  Age: 61 Year
  Sex: Female

DRUGS (1)
  1. DIGOXIN [Suspect]
     Dosage: UNKNOWN, UNK, PO
     Route: 048

REACTIONS (16)
  - ABDOMINAL PAIN [None]
  - CHOLECYSTITIS [None]
  - CHOLELITHIASIS [None]
  - COLONIC POLYP [None]
  - DIVERTICULUM [None]
  - DUODENITIS [None]
  - DYSPHAGIA [None]
  - ECONOMIC PROBLEM [None]
  - GASTRITIS EROSIVE [None]
  - GASTROOESOPHAGEAL REFLUX DISEASE [None]
  - ILL-DEFINED DISORDER [None]
  - MULTIPLE INJURIES [None]
  - NAUSEA [None]
  - OESOPHAGEAL STENOSIS [None]
  - OESOPHAGEAL ULCER [None]
  - SURGERY [None]
